FAERS Safety Report 10255656 (Version 1)
Quarter: 2014Q2

REPORT INFORMATION
  Report Type: Spontaneous
  Country: US (occurrence: None)
  Receive Date: 20140620
  Receipt Date: 20140620
  Transmission Date: 20141212
  Serious: Yes (Hospitalization)
  Sender: FDA-Public Use
  Company Number: IMP_07685_2014

PATIENT
  Age: 62 Year
  Sex: Male

DRUGS (5)
  1. BUPROPION [Suspect]
     Indication: PRODUCT USED FOR UNKNOWN INDICATION
     Route: 048
  2. TRAMADOL [Suspect]
     Indication: PAIN
     Route: 048
  3. TRAZODONE [Suspect]
     Indication: INSOMNIA
     Dosage: 25 MG [QHS PRN] ORAL
  4. OXYCODONE [Suspect]
     Indication: PAIN
     Dosage: [5-10 MG Q4H PRN] ORAL
  5. ALCOHOL [Concomitant]

REACTIONS (10)
  - Serotonin syndrome [None]
  - Leukocytosis [None]
  - Anaemia macrocytic [None]
  - Insomnia [None]
  - Confusional state [None]
  - Disorientation [None]
  - Anxiety [None]
  - Hallucination, visual [None]
  - Urinary incontinence [None]
  - Diarrhoea [None]
